FAERS Safety Report 10741313 (Version 2)
Quarter: 2015Q1

REPORT INFORMATION
  Report Type: Spontaneous
  Country: US (occurrence: US)
  Receive Date: 20150127
  Receipt Date: 20150323
  Transmission Date: 20150721
  Serious: Yes (Hospitalization)
  Sender: FDA-Public Use
  Company Number: US-INCYTE CORPORATION-2015IN000240

PATIENT
  Age: 77 Year
  Sex: Male

DRUGS (15)
  1. NORVASC [Concomitant]
     Active Substance: AMLODIPINE BESYLATE
     Dosage: 5 MG, UNK
     Route: 048
  2. TRICOR                             /00090101/ [Concomitant]
  3. WARFARIN [Concomitant]
     Active Substance: WARFARIN
  4. ZETIA [Concomitant]
     Active Substance: EZETIMIBE
     Dosage: 10 MG, QD
     Route: 048
  5. COREG [Concomitant]
     Active Substance: CARVEDILOL
     Dosage: 3.125 MG, BID
     Route: 048
  6. JAKAFI [Suspect]
     Active Substance: RUXOLITINIB
     Indication: MYELOFIBROSIS
     Dosage: 15 MG, BID
     Route: 048
     Dates: start: 20131221
  7. ARANESP [Concomitant]
     Active Substance: DARBEPOETIN ALFA
  8. DYNASTAT [Concomitant]
     Active Substance: PARECOXIB SODIUM
  9. ALLOPURINOL. [Concomitant]
     Active Substance: ALLOPURINOL
     Dosage: 100 MG, UNK
     Route: 048
  10. LOVENOX [Suspect]
     Active Substance: ENOXAPARIN SODIUM
     Dosage: 80 MG/0.8 ML TWICE DAILY
     Route: 030
  11. HYDROXYUREA. [Concomitant]
     Active Substance: HYDROXYUREA
  12. LIPITOR [Concomitant]
     Active Substance: ATORVASTATIN CALCIUM
     Dosage: 40 MG ONCE DAILY AT BEDTIME
     Route: 048
  13. MICARDIS [Concomitant]
     Active Substance: TELMISARTAN
     Dosage: 40 MG, UNK
     Route: 048
  14. FISH OIL [Concomitant]
     Active Substance: FISH OIL
  15. ARICEPT [Concomitant]
     Active Substance: DONEPEZIL HYDROCHLORIDE
     Dosage: 5 MG DAILY AT BEDTIME
     Route: 048

REACTIONS (3)
  - Acute kidney injury [Unknown]
  - Muscle haemorrhage [Unknown]
  - Anaemia [Recovering/Resolving]

NARRATIVE: CASE EVENT DATE: 201501
